FAERS Safety Report 8086115-8 (Version None)
Quarter: 2012Q1

REPORT INFORMATION
  Report Type: 
  Country: None (occurrence: None)
  Receive Date: 20120128
  Receipt Date: 20110412
  Transmission Date: 20120608
  Serious: No
  Sender: FDA-Public Use
  Company Number: US-ABBOTT-11P-163-0718946-00

PATIENT
  Sex: Female
  Weight: 62.652 kg

DRUGS (9)
  1. SULFASALAZINE [Concomitant]
     Indication: PSORIATIC ARTHROPATHY
  2. ESTROPIPATE [Concomitant]
     Indication: HORMONE REPLACEMENT THERAPY
  3. HUMIRA [Suspect]
     Indication: PSORIATIC ARTHROPATHY
     Dates: start: 20110223
  4. SYNTHROID [Concomitant]
     Indication: HYPOTHYROIDISM
  5. CELEBREX [Concomitant]
     Indication: PSORIATIC ARTHROPATHY
  6. XALATAN [Concomitant]
     Indication: GLAUCOMA
  7. ALENDRONATE SODIUM [Concomitant]
     Indication: OSTEOPOROSIS
  8. SIMVASTATIN [Concomitant]
     Indication: BLOOD CHOLESTEROL INCREASED
  9. AMLODIPINE [Concomitant]
     Indication: HYPERTENSION

REACTIONS (2)
  - OROPHARYNGEAL PAIN [None]
  - PRURITUS [None]
